FAERS Safety Report 19433153 (Version 1)
Quarter: 2021Q2

REPORT INFORMATION
  Report Type: Report from Study
  Country: IN (occurrence: IN)
  Receive Date: 20210617
  Receipt Date: 20210617
  Transmission Date: 20210717
  Serious: Yes (Death, Hospitalization)
  Sender: FDA-Public Use
  Company Number: NVSC2021IN136269

PATIENT
  Age: 51 Year
  Sex: Female

DRUGS (1)
  1. CERTICAN [Suspect]
     Active Substance: EVEROLIMUS
     Indication: RENAL TRANSPLANT
     Dosage: 0.5 MG, BID
     Route: 065
     Dates: start: 20160128

REACTIONS (3)
  - Kidney infection [Fatal]
  - Blood creatinine increased [Unknown]
  - SARS-CoV-2 test positive [Fatal]

NARRATIVE: CASE EVENT DATE: 202103
